FAERS Safety Report 24889880 (Version 1)
Quarter: 2025Q1

REPORT INFORMATION
  Report Type: Spontaneous
  Country: CA (occurrence: CA)
  Receive Date: 20250127
  Receipt Date: 20250127
  Transmission Date: 20250409
  Serious: Yes (Hospitalization)
  Sender: MYLAN
  Company Number: CA-MYLANLABS-2025M1006488

PATIENT
  Age: 92 Year
  Sex: Female

DRUGS (1)
  1. EFFEXOR [Suspect]
     Active Substance: VENLAFAXINE HYDROCHLORIDE
     Indication: Product used for unknown indication
     Dosage: 37.5 MILLIGRAM, QD ( 1 EVERY 1 DAYS)
     Route: 048

REACTIONS (7)
  - Dysstasia [Recovering/Resolving]
  - Feeding disorder [Recovering/Resolving]
  - Dehydration [Recovering/Resolving]
  - Gait inability [Recovering/Resolving]
  - Decreased appetite [Recovering/Resolving]
  - Nausea [Recovering/Resolving]
  - Orthostatic hypotension [Recovering/Resolving]
